FAERS Safety Report 10064944 (Version 1)
Quarter: 2014Q2

REPORT INFORMATION
  Report Type: Spontaneous
  Country: US (occurrence: US)
  Receive Date: 20140408
  Receipt Date: 20140408
  Transmission Date: 20141212
  Serious: No
  Sender: FDA-Public Use
  Company Number: US-009507513-1403USA007032

PATIENT
  Sex: Female

DRUGS (5)
  1. NASONEX [Suspect]
     Indication: SINUS POLYP
     Dosage: 2 PUFFS, DAILLY AS NEEDED
     Route: 045
     Dates: start: 2011, end: 2013
  2. NASONEX [Suspect]
     Indication: SINUS DISORDER
  3. CEFTIN [Concomitant]
     Dosage: UNK
  4. DILTIAZEM HYDROCHLORIDE [Concomitant]
     Dosage: UNK
  5. ASPIRIN [Concomitant]
     Dosage: UNK
     Route: 048

REACTIONS (4)
  - Sinusitis [Unknown]
  - Tinnitus [Unknown]
  - Ear discomfort [Not Recovered/Not Resolved]
  - Sinus disorder [Not Recovered/Not Resolved]
